FAERS Safety Report 21439024 (Version 1)
Quarter: 2022Q4

REPORT INFORMATION
  Report Type: Report from Study
  Country: US (occurrence: US)
  Receive Date: 20221011
  Receipt Date: 20221011
  Transmission Date: 20230112
  Serious: Yes (Other)
  Sender: FDA-Public Use
  Company Number: US-ABBVIE-4149471

PATIENT
  Sex: Female

DRUGS (3)
  1. HUMIRA [Suspect]
     Active Substance: ADALIMUMAB
     Indication: Rheumatoid arthritis
     Route: 058
  2. Pfizer/BioNTech [Concomitant]
     Indication: Product used for unknown indication
     Dosage: TIME INTERVAL: TOTAL: FIRST DOSE?1 IN 1 ONCE
     Route: 030
  3. Pfizer/BioNTech [Concomitant]
     Indication: Product used for unknown indication
     Dosage: TIME INTERVAL: TOTAL: BOOSTER DOSE?1 IN 1 ONCE
     Route: 030

REACTIONS (1)
  - Back disorder [Unknown]
